FAERS Safety Report 6856990-0 (Version None)
Quarter: 2010Q3

REPORT INFORMATION
  Report Type: 
  Country: None (occurrence: None)
  Receive Date: 20100719
  Receipt Date: 20100712
  Transmission Date: 20110219
  Serious: Yes (Other)
  Sender: FDA-Public Use
  Company Number: A0861037A

PATIENT
  Age: 24 Year
  Sex: Male
  Weight: 81.4 kg

DRUGS (2)
  1. LAMICTAL XR [Suspect]
     Dosage: 300MG PER DAY
     Route: 048
     Dates: start: 20100201
  2. EFFEXOR XR [Concomitant]

REACTIONS (7)
  - CONVULSION [None]
  - DISORIENTATION [None]
  - IMPAIRED DRIVING ABILITY [None]
  - LOSS OF CONSCIOUSNESS [None]
  - MALAISE [None]
  - MEMORY IMPAIRMENT [None]
  - SOMNOLENCE [None]
